FAERS Safety Report 12952967 (Version 1)
Quarter: 2016Q4

REPORT INFORMATION
  Report Type: Spontaneous
  Country: None (occurrence: US)
  Receive Date: 20161117
  Receipt Date: 20161117
  Transmission Date: 20170207
  Serious: No
  Sender: FDA-Public Use
  Company Number: US-MATRIXX INITIATIVES, INC.-1059709

PATIENT
  Age: 52 Year
  Weight: 79.55 kg

DRUGS (3)
  1. UNSPECIFIED HYPERTENSION MEDICATION [Concomitant]
  2. UNSPECIFIED DIABETES MEDICATION [Concomitant]
  3. ZICAM COLD REMEDY ULTRA CRYSTALS [Suspect]
     Active Substance: HOMEOPATHICS
     Indication: NASOPHARYNGITIS
     Route: 048
     Dates: start: 20161115, end: 20161116

REACTIONS (2)
  - Ageusia [None]
  - Tongue disorder [None]
